FAERS Safety Report 20769453 (Version 1)
Quarter: 2022Q2

REPORT INFORMATION
  Report Type: Spontaneous
  Country: US (occurrence: None)
  Receive Date: 20220429
  Receipt Date: 20220429
  Transmission Date: 20220720
  Serious: Yes (Hospitalization)
  Sender: FDA-Public Use
  Company Number: None

PATIENT
  Age: 35 Year
  Sex: Female
  Weight: 63.5 kg

DRUGS (1)
  1. HYDROCODONE [Suspect]
     Active Substance: HYDROCODONE
     Indication: Pain management
     Dosage: FREQUENCY : EVERY 6 HOURS;?

REACTIONS (4)
  - Road traffic accident [None]
  - Drug dependence [None]
  - Femur fracture [None]
  - Thrombosis [None]
